FAERS Safety Report 7224857-4 (Version None)
Quarter: 2011Q1

REPORT INFORMATION
  Report Type: 
  Country: None (occurrence: None)
  Receive Date: 20110113
  Receipt Date: 20110105
  Transmission Date: 20110831
  Serious: Yes (Other)
  Sender: FDA-Public Use
  Company Number: BR-ROCHE-739365

PATIENT
  Sex: Male
  Weight: 65 kg

DRUGS (2)
  1. RIBAVARIN [Concomitant]
  2. PEGINTERFERON ALFA-2A [Suspect]
     Indication: HEPATITIS C
     Dosage: FORM: INFUSION
     Route: 058
     Dates: start: 20100315

REACTIONS (5)
  - MALAISE [None]
  - ARTHRALGIA [None]
  - PAIN [None]
  - DECREASED IMMUNE RESPONSIVENESS [None]
  - HEADACHE [None]
